FAERS Safety Report 6520268-5 (Version None)
Quarter: 2009Q4

REPORT INFORMATION
  Report Type: 
  Country: None (occurrence: None)
  Receive Date: 20091229
  Receipt Date: 20091214
  Transmission Date: 20100525
  Serious: Yes (Other)
  Sender: FDA-Public Use
  Company Number: FR-PFIZER INC-2009310357

PATIENT
  Age: 61 Year
  Sex: Female

DRUGS (2)
  1. ALDACTONE [Suspect]
     Dosage: UNK
     Dates: end: 20090901
  2. LOXEN [Concomitant]

REACTIONS (1)
  - HEPATIC NECROSIS [None]
